FAERS Safety Report 10461818 (Version 1)
Quarter: 2014Q3

REPORT INFORMATION
  Report Type: Spontaneous
  Country: GB (occurrence: GB)
  Receive Date: 20140918
  Receipt Date: 20140918
  Transmission Date: 20150326
  Serious: Yes (Other)
  Sender: FDA-Public Use
  Company Number: GB-TEVA-508457ISR

PATIENT

DRUGS (2)
  1. METHOTREXATE [Suspect]
     Active Substance: METHOTREXATE
     Indication: UVEITIS
     Dosage: 400MICROG IN 0.1ML
     Route: 050
  2. POVIDONE IODINE [Concomitant]
     Active Substance: POVIDONE-IODINE
     Dosage: 5%
     Route: 050

REACTIONS (1)
  - Ocular hypertension [Recovered/Resolved]
